FAERS Safety Report 9667600 (Version 1)
Quarter: 2013Q4

REPORT INFORMATION
  Report Type: Spontaneous
  Country: IT (occurrence: IT)
  Receive Date: 20131104
  Receipt Date: 20131104
  Transmission Date: 20140711
  Serious: Yes (Other)
  Sender: FDA-Public Use
  Company Number: IT-TEVA-441869ISR

PATIENT
  Age: 64 Year
  Sex: Female
  Weight: 80 kg

DRUGS (6)
  1. FLUOROURACILE [Suspect]
     Indication: RECTAL ADENOCARCINOMA
     Dosage: 5220 MILLIGRAM DAILY;
     Route: 042
     Dates: start: 20130716
  2. CAMPTO [Suspect]
     Indication: RECTAL ADENOCARCINOMA
     Dosage: 330 MILLIGRAM DAILY;
     Route: 042
     Dates: start: 20130716
  3. NORVASC [Concomitant]
     Indication: HYPERTENSION
  4. BLOPRESS [Concomitant]
     Indication: HYPERTENSION
  5. ACIDO LEVO FOLINICO [Concomitant]
     Dates: start: 20130716, end: 20130910
  6. REUMILASE (DIETARY SUPPLEMENT) [Concomitant]

REACTIONS (2)
  - Neutropenia [Not Recovered/Not Resolved]
  - Mucosal inflammation [Not Recovered/Not Resolved]
